FAERS Safety Report 12569670 (Version 3)
Quarter: 2016Q4

REPORT INFORMATION
  Report Type: Spontaneous
  Country: US (occurrence: US)
  Receive Date: 20160719
  Receipt Date: 20161010
  Transmission Date: 20170207
  Serious: Yes (Other)
  Sender: FDA-Public Use
  Company Number: US-BAYER-2016-139740

PATIENT
  Age: 45 Year
  Sex: Female
  Weight: 82 kg

DRUGS (1)
  1. MIRENA [Suspect]
     Active Substance: LEVONORGESTREL
     Indication: DYSMENORRHOEA
     Dosage: 20 MCG/24HR, CONT
     Route: 015
     Dates: start: 20160314, end: 20160321

REACTIONS (12)
  - Feeling abnormal [None]
  - Uterine tenderness [None]
  - Medical device discomfort [None]
  - Cystitis [None]
  - Dysuria [None]
  - Abdominal pain lower [None]
  - Pelvic discomfort [None]
  - Off label use of device [None]
  - Drug ineffective [None]
  - Vaginal haemorrhage [None]
  - Patient-device incompatibility [None]
  - Nausea [None]

NARRATIVE: CASE EVENT DATE: 201603
